FAERS Safety Report 19661951 (Version 2)
Quarter: 2022Q3

REPORT INFORMATION
  Report Type: Spontaneous
  Country: US (occurrence: US)
  Receive Date: 20210805
  Receipt Date: 20220805
  Transmission Date: 20221027
  Serious: Yes (Other)
  Sender: FDA-Public Use
  Company Number: US-ACCORD-203505

PATIENT
  Age: 59 Year
  Sex: Female

DRUGS (15)
  1. DOCETAXEL [Suspect]
     Active Substance: DOCETAXEL
     Indication: Breast cancer
     Dosage: NUMBER OF CYCLES: 04
     Dates: start: 20161023, end: 20170123
  2. ASPIRIN [Concomitant]
     Active Substance: ASPIRIN
  3. CETIRIZINE [Concomitant]
     Active Substance: CETIRIZINE HYDROCHLORIDE
  4. VITAMIN D [Concomitant]
     Active Substance: VITAMIN D NOS
  5. ISOSORBIDE [Concomitant]
     Active Substance: ISOSORBIDE
     Dates: start: 201208
  6. METOPROLOL SUCCINATE [Concomitant]
     Active Substance: METOPROLOL SUCCINATE
     Dates: start: 201208
  7. PRAVASTATIN [Concomitant]
     Active Substance: PRAVASTATIN
  8. COENZYME Q10 [Concomitant]
     Active Substance: DIETARY SUPPLEMENT\UBIDECARENONE
  9. HYDROCHLOROTHIAZIDE\TRIAMTERENE [Concomitant]
     Active Substance: HYDROCHLOROTHIAZIDE\TRIAMTERENE
     Dates: start: 2016
  10. PANTOPRAZOLE [Concomitant]
     Active Substance: PANTOPRAZOLE
     Dates: start: 2017
  11. LETROZOLE [Concomitant]
     Active Substance: LETROZOLE
     Dates: start: 2017
  12. IBRANCE [Concomitant]
     Active Substance: PALBOCICLIB
     Dates: start: 201705
  13. FASLODEX [Concomitant]
     Active Substance: FULVESTRANT
     Dates: start: 2016, end: 201705
  14. COMPAZINE [Concomitant]
     Active Substance: PROCHLORPERAZINE MALEATE
     Dates: start: 2016, end: 201705
  15. ZOFRAN [Concomitant]
     Active Substance: ONDANSETRON HYDROCHLORIDE
     Dates: end: 201705

REACTIONS (1)
  - Alopecia [Not Recovered/Not Resolved]

NARRATIVE: CASE EVENT DATE: 20170701
